FAERS Safety Report 4973198-4 (Version None)
Quarter: 2006Q2

REPORT INFORMATION
  Report Type: 
  Country: None (occurrence: None)
  Receive Date: 20060414
  Receipt Date: 20051205
  Transmission Date: 20061013
  Serious: Yes (Death)
  Sender: FDA-Public Use
  Company Number: US-MERCK-0512USA00826

PATIENT
  Age: 67 Year
  Sex: Male
  Weight: 73 kg

DRUGS (7)
  1. VIOXX [Suspect]
     Indication: PAIN
     Route: 048
     Dates: start: 20020205, end: 20020325
  2. VIOXX [Suspect]
     Route: 048
     Dates: start: 20031016, end: 20031103
  3. VASOTEC [Concomitant]
     Indication: HYPERTENSION
     Route: 065
     Dates: start: 20020201, end: 20021001
  4. VERAPAMIL [Concomitant]
     Indication: CARDIAC DISORDER
     Route: 065
     Dates: start: 20020201, end: 20030201
  5. HYTRIN [Concomitant]
     Indication: HYPERTENSION
     Route: 065
     Dates: start: 20020201, end: 20021001
  6. VITAFOL CAPLETS [Concomitant]
     Indication: HYPOVITAMINOSIS
     Route: 065
  7. FOLIC ACID [Concomitant]
     Indication: HYPOVITAMINOSIS
     Route: 065

REACTIONS (5)
  - ACUTE MYOCARDIAL INFARCTION [None]
  - BLOOD CHOLESTEROL INCREASED [None]
  - CHRONIC OBSTRUCTIVE PULMONARY DISEASE [None]
  - RENAL CYST [None]
  - SKIN CANCER [None]
